FAERS Safety Report 15159796 (Version 1)
Quarter: 2018Q3

REPORT INFORMATION
  Report Type: Spontaneous
  Country: GB (occurrence: GB)
  Receive Date: 20180718
  Receipt Date: 20180718
  Transmission Date: 20181010
  Serious: Yes (Disabling)
  Sender: FDA-Public Use
  Company Number: GB-GLAXOSMITHKLINE-GB2018125291

PATIENT
  Age: 76 Year
  Sex: Female
  Weight: 41 kg

DRUGS (18)
  1. CALCICHEW D3 [Concomitant]
     Active Substance: CALCIUM\CHOLECALCIFEROL
     Indication: PRODUCT USED FOR UNKNOWN INDICATION
     Dosage: 2 DF, QD
     Route: 065
     Dates: start: 20180213, end: 20180620
  2. AMLODIPINE [Concomitant]
     Active Substance: AMLODIPINE BESYLATE
     Indication: PRODUCT USED FOR UNKNOWN INDICATION
     Dosage: 1 DF, QD
     Route: 065
     Dates: start: 20180213
  3. TRIMBOW [Concomitant]
     Indication: PRODUCT USED FOR UNKNOWN INDICATION
     Dosage: PUFFS VIA AEROCHAMBER
     Route: 065
     Dates: start: 20180410, end: 20180430
  4. DOXYCYCLINE. [Concomitant]
     Active Substance: DOXYCYCLINE
     Indication: PRODUCT USED FOR UNKNOWN INDICATION
     Dosage: 2 CAPSULES ON DAY 1. THEN TAKE 1 CAPSULE
     Route: 065
     Dates: start: 20180601, end: 20180608
  5. ALENDRONIC ACID [Concomitant]
     Active Substance: ALENDRONIC ACID
     Indication: PRODUCT USED FOR UNKNOWN INDICATION
     Dosage: SWALLOW WHOLE
     Dates: start: 20180213, end: 20180620
  6. CARBOCISTEINE [Concomitant]
     Active Substance: CARBOCYSTEINE
     Indication: PRODUCT USED FOR UNKNOWN INDICATION
     Dosage: REDUCING TO
     Route: 065
     Dates: start: 20180629
  7. PREDNISOLONE. [Concomitant]
     Active Substance: PREDNISOLONE
     Indication: PRODUCT USED FOR UNKNOWN INDICATION
     Dosage: FOR 5 DAYS
     Route: 065
     Dates: start: 20180601, end: 20180606
  8. SPIRIVA [Concomitant]
     Active Substance: TIOTROPIUM BROMIDE MONOHYDRATE
     Indication: PRODUCT USED FOR UNKNOWN INDICATION
     Dosage: PUFFS
     Route: 065
     Dates: start: 20180213, end: 20180629
  9. SPIOLTO RESPIMAT [Concomitant]
     Active Substance: OLODATEROL HYDROCHLORIDE\TIOTROPIUM BROMIDE MONOHYDRATE
     Indication: PRODUCT USED FOR UNKNOWN INDICATION
     Dosage: PUFFS
     Route: 065
     Dates: start: 20180702
  10. AVAMYS [Concomitant]
     Active Substance: FLUTICASONE FUROATE
     Indication: PRODUCT USED FOR UNKNOWN INDICATION
     Dosage: BOTH NOSTRILS
     Route: 045
     Dates: start: 20180213
  11. COCODAMOL [Concomitant]
     Active Substance: ACETAMINOPHEN\CODEINE PHOSPHATE
     Indication: PAIN
     Dosage: 1 OR 2 WHEN REQUIRED
     Route: 065
     Dates: start: 20180213
  12. MICONAZOLE. [Concomitant]
     Active Substance: MICONAZOLE
     Indication: PRODUCT USED FOR UNKNOWN INDICATION
     Dosage: FOR 7 DAYS
     Route: 065
     Dates: start: 20180702
  13. VENTOLIN [Concomitant]
     Active Substance: ALBUTEROL SULFATE
     Indication: PRODUCT USED FOR UNKNOWN INDICATION
     Dosage: 3?4 TIMES/DAY
     Route: 055
     Dates: start: 20180614, end: 20180619
  14. SALBUTAMOL [Concomitant]
     Active Substance: ALBUTEROL
     Indication: PRODUCT USED FOR UNKNOWN INDICATION
     Dosage: 3?4 TIMES/DAY
     Route: 055
     Dates: start: 20180213
  15. ANORO ELLIPTA [Suspect]
     Active Substance: UMECLIDINIUM BROMIDE\VILANTEROL TRIFENATATE
     Indication: PRODUCT USED FOR UNKNOWN INDICATION
     Dosage: UNK
     Route: 065
     Dates: start: 20180620
  16. VOLTAROL [Concomitant]
     Active Substance: DICLOFENAC SODIUM
     Indication: PRODUCT USED FOR UNKNOWN INDICATION
     Dosage: APPLY
     Route: 065
     Dates: start: 20180213, end: 20180418
  17. SERETIDE [Concomitant]
     Active Substance: FLUTICASONE PROPIONATE\SALMETEROL XINAFOATE
     Indication: PRODUCT USED FOR UNKNOWN INDICATION
     Dosage: 2 DF, QD
     Route: 055
     Dates: start: 20180213, end: 20180620
  18. LAXIDO [Concomitant]
     Active Substance: POLYETHYLENE GLYCOL 3350\POTASSIUM CHLORIDE\SODIUM BICARBONATE\SODIUM CHLORIDE
     Indication: PRODUCT USED FOR UNKNOWN INDICATION
     Dosage: 1?2 SACHETS
     Dates: start: 20180213, end: 20180418

REACTIONS (5)
  - Gingival swelling [Unknown]
  - Lip swelling [Recovering/Resolving]
  - Oral pain [Recovering/Resolving]
  - Dry mouth [Recovering/Resolving]
  - Gingival pain [Recovering/Resolving]

NARRATIVE: CASE EVENT DATE: 20180702
